FAERS Safety Report 8504522-3 (Version None)
Quarter: 2012Q3

REPORT INFORMATION
  Report Type: 
  Country: None (occurrence: None)
  Receive Date: 20120711
  Receipt Date: 20120704
  Transmission Date: 20120928
  Serious: Yes (Hospitalization)
  Sender: FDA-Public Use
  Company Number: CA-ROCHE-1084512

PATIENT
  Sex: Female
  Weight: 86.26 kg

DRUGS (9)
  1. CYMBALTA [Concomitant]
  2. WELLBUTRIN [Concomitant]
  3. ACTEMRA [Suspect]
     Route: 042
     Dates: start: 20120412
  4. ARTHROTEC [Concomitant]
  5. TYLENOL W/ CODEINE NO. 3 [Concomitant]
  6. FOLIC ACID [Concomitant]
  7. RISPERDAL [Concomitant]
  8. ACTEMRA [Suspect]
     Indication: RHEUMATOID ARTHRITIS
     Route: 042
     Dates: start: 20111123
  9. METHOTREXATE [Concomitant]

REACTIONS (1)
  - DEPRESSION [None]
